FAERS Safety Report 6904532-3 (Version None)
Quarter: 2010Q3

REPORT INFORMATION
  Report Type: 
  Country: None (occurrence: None)
  Receive Date: 20100804
  Receipt Date: 20090615
  Transmission Date: 20110219
  Serious: Yes (Other)
  Sender: FDA-Public Use
  Company Number: US-PFIZER INC-2008093920

PATIENT
  Sex: Female
  Weight: 72.562 kg

DRUGS (4)
  1. LYRICA [Suspect]
     Indication: FIBROMYALGIA
     Dosage: 50 MG, 1X/DAY
     Route: 048
     Dates: start: 20071214, end: 20071217
  2. LYRICA [Suspect]
     Dosage: 50 MG, 2X/DAY
     Route: 048
     Dates: start: 20081001, end: 20081103
  3. EFFEXOR [Concomitant]
     Indication: PAIN
  4. EFFEXOR [Concomitant]
     Indication: FIBROMYALGIA

REACTIONS (5)
  - DIZZINESS [None]
  - FEELING ABNORMAL [None]
  - MALAISE [None]
  - SLUGGISHNESS [None]
  - SUICIDAL BEHAVIOUR [None]
